FAERS Safety Report 5727811-4 (Version None)
Quarter: 2008Q2

REPORT INFORMATION
  Report Type: 
  Country: None (occurrence: None)
  Receive Date: 20080505
  Receipt Date: 20080423
  Transmission Date: 20081010
  Serious: Yes (Hospitalization)
  Sender: FDA-Public Use
  Company Number: GB-PFIZER INC-2008036918

PATIENT
  Age: 44 Year
  Sex: Female
  Weight: 85.7 kg

DRUGS (2)
  1. CHANTIX [Suspect]
     Indication: SMOKING CESSATION THERAPY
     Route: 048
     Dates: start: 20071008, end: 20071028
  2. OMEPRAZOLE [Concomitant]

REACTIONS (1)
  - ANGIOEDEMA [None]
